FAERS Safety Report 8976974 (Version 1)
Quarter: 2012Q4

REPORT INFORMATION
  Report Type: 
  Country: US (occurrence: US)
  Receive Date: 20121220
  Receipt Date: 20121220
  Transmission Date: 20130627
  Serious: No
  Sender: FDA-Public Use
  Company Number: US-GLAXOSMITHKLINE-A0962720A

PATIENT
  Sex: Female

DRUGS (8)
  1. SORIATANE [Suspect]
     Indication: SKIN CANCER
     Dosage: 10MG Per day
     Route: 048
     Dates: start: 2002
  2. VITAMIN D [Concomitant]
  3. CITRACAL [Concomitant]
  4. ADVAIR [Concomitant]
  5. BACTRIM [Concomitant]
  6. RAPAMUNE [Concomitant]
  7. BYSTOLIC [Concomitant]
  8. FUROSEMIDE [Concomitant]

REACTIONS (2)
  - Blood triglycerides abnormal [Not Recovered/Not Resolved]
  - Therapeutic response unexpected [Unknown]
